FAERS Safety Report 14528208 (Version 1)
Quarter: 2018Q1

REPORT INFORMATION
  Report Type: Report from Study
  Country: None (occurrence: DE)
  Receive Date: 20180214
  Receipt Date: 20180214
  Transmission Date: 20180509
  Serious: Yes (Hospitalization, Other)
  Sender: FDA-Public Use
  Company Number: DE-ABBVIE-12P-062-1027128-00

PATIENT
  Sex: Female

DRUGS (4)
  1. HUMIRA [Suspect]
     Active Substance: ADALIMUMAB
     Indication: PRODUCT USED FOR UNKNOWN INDICATION
     Route: 058
     Dates: start: 201110, end: 201202
  2. PREDNISOLON [Concomitant]
     Active Substance: PREDNISOLONE
     Indication: PRODUCT USED FOR UNKNOWN INDICATION
     Dosage: 5 MG DAILY
     Dates: end: 2012
  3. MTX [Suspect]
     Active Substance: METHOTREXATE SODIUM
     Indication: PRODUCT USED FOR UNKNOWN INDICATION
     Route: 048
     Dates: start: 200807, end: 20120918
  4. LEFLUNOMIDE. [Concomitant]
     Active Substance: LEFLUNOMIDE
     Indication: RHEUMATOID ARTHRITIS
     Dates: start: 2012, end: 2014

REACTIONS (11)
  - Oral discomfort [Unknown]
  - Renal failure [Unknown]
  - Leukopenia [Unknown]
  - Hypotension [Unknown]
  - Pain [Unknown]
  - Fatigue [Unknown]
  - Hypercalcaemia [Unknown]
  - Normochromic normocytic anaemia [Unknown]
  - Dysphagia [Unknown]
  - Pyrexia [Recovering/Resolving]
  - Nephrolithiasis [Unknown]

NARRATIVE: CASE EVENT DATE: 201203
